FAERS Safety Report 15834646 (Version 1)
Quarter: 2019Q1

REPORT INFORMATION
  Report Type: Spontaneous
  Country: US (occurrence: US)
  Receive Date: 20190116
  Receipt Date: 20190116
  Transmission Date: 20190417
  Serious: No
  Sender: FDA-Public Use
  Company Number: US-PFIZER INC-2019013604

PATIENT
  Sex: Female

DRUGS (1)
  1. LORBRENA [Suspect]
     Active Substance: LORLATINIB
     Dosage: 6 DF, UNK

REACTIONS (4)
  - Hallucination [Unknown]
  - Wrong dose [Unknown]
  - Faeces soft [Unknown]
  - Feeling abnormal [Unknown]
